FAERS Safety Report 21908638 (Version 1)
Quarter: 2023Q1

REPORT INFORMATION
  Report Type: Spontaneous
  Country: US (occurrence: None)
  Receive Date: 20230124
  Receipt Date: 20230124
  Transmission Date: 20230418
  Serious: Yes (Hospitalization, Disabling)
  Sender: FDA-Public Use
  Company Number: None

PATIENT
  Age: 38 Year
  Sex: Female
  Weight: 56.25 kg

DRUGS (1)
  1. CIPROFLOXACIN [Suspect]
     Active Substance: CIPROFLOXACIN
     Indication: Urinary tract infection
     Dosage: OTHER QUANTITY : 14 TABLET(S);?FREQUENCY : TWICE A DAY;?
     Route: 048
     Dates: start: 20230111, end: 20230113

REACTIONS (20)
  - Paraesthesia [None]
  - Paraesthesia [None]
  - Dizziness [None]
  - Dizziness [None]
  - Nausea [None]
  - Fatigue [None]
  - Anxiety [None]
  - Panic attack [None]
  - Insomnia [None]
  - Self-injurious ideation [None]
  - Tendon pain [None]
  - Arthralgia [None]
  - Asthenia [None]
  - Paraesthesia [None]
  - Hypoaesthesia [None]
  - Paraesthesia [None]
  - Hypoaesthesia [None]
  - Feeling abnormal [None]
  - Muscle spasms [None]
  - Gait inability [None]

NARRATIVE: CASE EVENT DATE: 20230111
